FAERS Safety Report 6676832-6 (Version None)
Quarter: 2010Q2

REPORT INFORMATION
  Report Type: 
  Country: None (occurrence: None)
  Receive Date: 20100412
  Receipt Date: 20100331
  Transmission Date: 20101027
  Serious: Yes (Hospitalization, Other)
  Sender: FDA-Public Use
  Company Number: BR-PFIZER INC-2010039537

PATIENT
  Age: 66 Year
  Sex: Female

DRUGS (7)
  1. NORVASC [Suspect]
     Indication: HYPERTENSION
     Dosage: 1 DF, 1X/DAY
     Route: 048
  2. OLMESARTAN MEDOXOMIL AND HYDROCHLOROTHIZIDE [Suspect]
     Indication: HYPERTENSION
     Dosage: 1 DF, 1X/DAY
     Route: 048
  3. ALDOMET [Suspect]
     Indication: HYPERTENSION
     Dosage: 250 MG, 2X/DAY
     Route: 048
     Dates: start: 19950101, end: 20091101
  4. VALSARTAN [Suspect]
     Indication: HYPERTENSION
     Dosage: 1 TABLET (UNKNOWN DOSE), 1X/DAY
  5. INDAPAMIDE [Suspect]
     Indication: HYPERTENSION
     Dosage: UNK
     Dates: end: 20090101
  6. INSULIN HUMAN [Concomitant]
     Indication: DIABETES MELLITUS
     Dosage: UNK
  7. REGULAR INSULIN [Concomitant]
     Indication: DIABETES MELLITUS
     Dosage: UNK

REACTIONS (6)
  - BLOOD PRESSURE INCREASED [None]
  - DERMATITIS ALLERGIC [None]
  - DRUG INEFFECTIVE [None]
  - GENERALISED OEDEMA [None]
  - HYPERSENSITIVITY [None]
  - PULMONARY OEDEMA [None]
